FAERS Safety Report 8864354 (Version 1)
Quarter: 2012Q4

REPORT INFORMATION
  Report Type: 
  Country: US (occurrence: US)
  Receive Date: 20121024
  Receipt Date: 20121024
  Transmission Date: 20130627
  Serious: No
  Sender: FDA-Public Use
  Company Number: US-AMGEN-USASP2011066958

PATIENT
  Sex: Female
  Weight: 58.96 kg

DRUGS (8)
  1. ENBREL [Suspect]
     Indication: PRODUCT USED FOR UNKNOWN INDICATION
     Dosage: 50 mg, qwk
     Route: 058
  2. CALTRATE [Concomitant]
     Dosage: 600 mg, UNK
  3. FOSAMAX [Concomitant]
     Dosage: 5 mg, UNK
  4. METHOTREXATE [Concomitant]
     Dosage: 2.5 mg, UNK
  5. PREDNISONE [Concomitant]
     Dosage: 1 mg, UNK
  6. NEXIUM [Concomitant]
     Dosage: 20 mg, UNK
  7. FOLIC ACID [Concomitant]
  8. LEVOXYL [Concomitant]
     Dosage: 50 mug, UNK

REACTIONS (3)
  - Injection site pain [Unknown]
  - Injection site erythema [Unknown]
  - Injection site swelling [Unknown]
